FAERS Safety Report 5152765-1 (Version None)
Quarter: 2006Q4

REPORT INFORMATION
  Report Type: 
  Country: None (occurrence: None)
  Receive Date: 20060918
  Receipt Date: 20050722
  Transmission Date: 20070319
  Serious: Yes (Hospitalization)
  Sender: FDA-Public Use
  Company Number: US-JNJFOC-20050606149

PATIENT
  Age: 76 Year
  Sex: Male

DRUGS (8)
  1. TOPAMAX [Suspect]
     Indication: CLUSTER HEADACHE
     Dosage: 100 MG 1 IN 1 DAY ORAL
     Route: 048
  2. TOPAMAX [Suspect]
     Indication: CONVULSION
     Dosage: 100 MG 1 IN 1 DAY ORAL
     Route: 048
  3. NASACORT (TRIAMCINOLONE ACETOMIDE) [Concomitant]
  4. NASACORT [Concomitant]
  5. NEXIUM [Concomitant]
  6. COMBIVENT [Concomitant]
  7. FLONASE [Concomitant]
  8. CALAN [Concomitant]

REACTIONS (2)
  - CONVULSION [None]
  - HEADACHE [None]
